FAERS Safety Report 15269016 (Version 1)
Quarter: 2018Q3

REPORT INFORMATION
  Report Type: Other
  Country: DE (occurrence: DE)
  Receive Date: 20180813
  Receipt Date: 20180813
  Transmission Date: 20181010
  Serious: Yes (Congenital Anomaly)
  Sender: FDA-Public Use
  Company Number: DE-DEXPHARM-20180575

PATIENT
  Sex: Male

DRUGS (2)
  1. DULOXETINE. [Suspect]
     Active Substance: DULOXETINE
  2. DICLOFENAC [Suspect]
     Active Substance: DICLOFENAC
     Dosage: 150 MG/D

REACTIONS (6)
  - Atrial septal defect [Unknown]
  - Patent ductus arteriosus [Unknown]
  - Congenital tricuspid valve atresia [Unknown]
  - Foetal exposure during pregnancy [Unknown]
  - Ventricular hypoplasia [Unknown]
  - Ventricular septal defect [Unknown]
